FAERS Safety Report 21323746 (Version 1)
Quarter: 2022Q3

REPORT INFORMATION
  Report Type: Report from Study
  Country: TR (occurrence: TR)
  Receive Date: 20220912
  Receipt Date: 20220912
  Transmission Date: 20221026
  Serious: Yes (Death, Other)
  Sender: FDA-Public Use
  Company Number: TR-UCBSA-2022053591

PATIENT
  Age: 57 Year
  Sex: Male

DRUGS (7)
  1. CERTOLIZUMAB PEGOL [Suspect]
     Active Substance: CERTOLIZUMAB PEGOL
     Indication: Hidradenitis
     Dosage: UNK
  2. CERTOLIZUMAB PEGOL [Suspect]
     Active Substance: CERTOLIZUMAB PEGOL
     Indication: Off label use
  3. ADALIMUMAB [Concomitant]
     Active Substance: ADALIMUMAB
     Indication: Hidradenitis
     Dosage: UNK
  4. INFLIXIMAB [Concomitant]
     Active Substance: INFLIXIMAB
     Indication: Product used for unknown indication
     Dosage: UNK
  5. SECUKINUMAB [Concomitant]
     Active Substance: SECUKINUMAB
     Indication: Product used for unknown indication
     Dosage: UNK
  6. KINERET [Concomitant]
     Active Substance: ANAKINRA
     Indication: Product used for unknown indication
     Dosage: UNK
  7. KINERET [Concomitant]
     Active Substance: ANAKINRA
     Dosage: UNK

REACTIONS (2)
  - COVID-19 [Fatal]
  - Off label use [Unknown]
